FAERS Safety Report 19661542 (Version 2)
Quarter: 2021Q3

REPORT INFORMATION
  Report Type: Spontaneous
  Country: JP (occurrence: JP)
  Receive Date: 20210805
  Receipt Date: 20210920
  Transmission Date: 20211014
  Serious: Yes (Death, Life-Threatening, Hospitalization)
  Sender: FDA-Public Use
  Company Number: JP-JNJFOC-20210765578

PATIENT
  Age: 48 Year
  Sex: Female
  Weight: 54 kg

DRUGS (2)
  1. OPSUMIT [Suspect]
     Active Substance: MACITENTAN
     Indication: PRODUCT USED FOR UNKNOWN INDICATION
     Dosage: DOSE UNKNOWN
     Route: 048
     Dates: start: 2018
  2. TRACLEER [Concomitant]
     Active Substance: BOSENTAN
     Route: 048
     Dates: end: 2018

REACTIONS (2)
  - Tracheal haemorrhage [Fatal]
  - Palpitations [Unknown]

NARRATIVE: CASE EVENT DATE: 2018
